FAERS Safety Report 23501158 (Version 1)
Quarter: 2024Q1

REPORT INFORMATION
  Report Type: Spontaneous
  Country: US (occurrence: US)
  Receive Date: 20240208
  Receipt Date: 20240208
  Transmission Date: 20240410
  Serious: No
  Sender: FDA-Public Use
  Company Number: US-PERRIGO-23US001868

PATIENT
  Age: 64 Year
  Sex: Female
  Weight: 90.703 kg

DRUGS (4)
  1. CETIRIZINE HYDROCHLORIDE [Suspect]
     Active Substance: CETIRIZINE HYDROCHLORIDE
     Indication: Sneezing
     Dosage: 10 MG, QD
     Route: 048
     Dates: start: 20230202, end: 20230204
  2. CETIRIZINE HYDROCHLORIDE [Suspect]
     Active Substance: CETIRIZINE HYDROCHLORIDE
     Indication: Rhinorrhoea
     Dosage: 10 MG, SINGLE
     Route: 048
     Dates: start: 20230206, end: 20230206
  3. CETIRIZINE HYDROCHLORIDE [Suspect]
     Active Substance: CETIRIZINE HYDROCHLORIDE
     Indication: Perennial allergy
     Dosage: 1/2 TABLET, SINGLE
     Route: 048
     Dates: start: 20230208, end: 20230208
  4. ADVIL [Concomitant]
     Active Substance: IBUPROFEN
     Indication: Joint swelling
     Dosage: UNK
     Route: 065
     Dates: start: 202109

REACTIONS (12)
  - Dizziness [Recovered/Resolved]
  - Vertigo [Recovered/Resolved]
  - Feeling abnormal [Recovered/Resolved]
  - Vision blurred [Not Recovered/Not Resolved]
  - Visual impairment [Recovered/Resolved]
  - Gait disturbance [Recovered/Resolved]
  - Disorientation [Recovered/Resolved]
  - Post concussion syndrome [Recovered/Resolved]
  - Dysphemia [Recovered/Resolved]
  - Speech disorder [Recovered/Resolved]
  - Underdose [Recovered/Resolved]
  - Wrong technique in product usage process [Recovered/Resolved]

NARRATIVE: CASE EVENT DATE: 20230202
